FAERS Safety Report 7075237-6 (Version None)
Quarter: 2010Q4

REPORT INFORMATION
  Report Type: 
  Country: None (occurrence: None)
  Receive Date: 20101030
  Receipt Date: 20100827
  Transmission Date: 20110411
  Serious: No
  Sender: FDA-Public Use
  Company Number: US-WYE-H16227310

PATIENT
  Age: 80 Year
  Sex: Female

DRUGS (4)
  1. ALAVERT [Suspect]
     Indication: HYPERSENSITIVITY
     Dosage: 1 TABLET, 1 TIME
     Route: 048
     Dates: start: 20100628, end: 20100628
  2. ALAVERT [Suspect]
     Indication: RHINORRHOEA
  3. ALAVERT [Suspect]
     Indication: NASAL DISCOMFORT
  4. ATIVAN [Concomitant]

REACTIONS (1)
  - DRUG INEFFECTIVE [None]
